FAERS Safety Report 10062954 (Version 1)
Quarter: 2014Q1

REPORT INFORMATION
  Report Type: Spontaneous
  Country: US (occurrence: None)
  Receive Date: 20140318
  Receipt Date: 20140318
  Transmission Date: 20141002
  Serious: Yes (Hospitalization)
  Sender: FDA-Public Use
  Company Number: 111256

PATIENT
  Sex: Male

DRUGS (1)
  1. ROTIGOTINE [Suspect]
     Indication: PARKINSON^S DISEASE
     Dosage: (8 MG, TOTAL DAILY DOSE 8MG TRANSDERMAL),
     Route: 062

REACTIONS (2)
  - Chest pain [None]
  - Malaise [None]
